FAERS Safety Report 9735452 (Version 2)
Quarter: 2015Q3

REPORT INFORMATION
  Report Type: Spontaneous
  Country: US (occurrence: US)
  Receive Date: 20131206
  Receipt Date: 20150804
  Transmission Date: 20151125
  Serious: No
  Sender: FDA-Public Use
  Company Number: US-GILEAD-2009-0022871

PATIENT
  Age: 52 Year
  Sex: Female
  Weight: 81.65 kg

DRUGS (14)
  1. LETAIRIS [Suspect]
     Active Substance: AMBRISENTAN
     Indication: PULMONARY ARTERIAL HYPERTENSION
     Route: 048
     Dates: start: 20080820
  2. ATENOLOL. [Concomitant]
     Active Substance: ATENOLOL
  3. MULTIVITAMIN [Concomitant]
     Active Substance: VITAMINS
  4. TYLENOL EXTRA STRENGTH [Concomitant]
     Active Substance: ACETAMINOPHEN
     Indication: ARTHRITIS
  5. FLONASE [Concomitant]
     Active Substance: FLUTICASONE PROPIONATE
  6. ZOLOFT [Concomitant]
     Active Substance: SERTRALINE HYDROCHLORIDE
  7. L-ARGININE [Concomitant]
     Active Substance: ARGININE
  8. HYDROCHLOROTHIAZIDE. [Concomitant]
     Active Substance: HYDROCHLOROTHIAZIDE
  9. BUSPAR [Concomitant]
     Active Substance: BUSPIRONE HYDROCHLORIDE
  10. COENZYME Q-10 [Concomitant]
  11. OMEGA 3 [Concomitant]
     Active Substance: OMEGA-3 FATTY ACIDS
  12. ASPIRIN. [Concomitant]
     Active Substance: ASPIRIN
  13. FLAXSEED [Concomitant]
     Active Substance: FLAX SEED
  14. BENADRYL [Concomitant]
     Active Substance: DIPHENHYDRAMINE HYDROCHLORIDE

REACTIONS (2)
  - Arthritis [Unknown]
  - Arthralgia [Unknown]
